FAERS Safety Report 8942345 (Version 2)
Quarter: 2013Q1

REPORT INFORMATION
  Report Type: Spontaneous
  Country: US (occurrence: None)
  Receive Date: 20121123
  Receipt Date: 20121221
  Transmission Date: 20140127
  Serious: Yes (Hospitalization, Other)
  Sender: FDA-Public Use
  Company Number: 2012P1065026

PATIENT
  Age: 51 Year
  Sex: Female
  Weight: 117.94 kg

DRUGS (9)
  1. REGLAN [Suspect]
     Indication: GASTROINTESTINAL DISORDER
     Dosage: 10 MG;TID-QID;
  2. CHANTIX [Suspect]
     Indication: SMOKING CESSATION THERAPY
  3. TRAMADOL HYDROCHLORIDE [Concomitant]
  4. BACLOFEN [Concomitant]
  5. TESSALON PERLE [Concomitant]
  6. DILTIAZEM HYDROCHLORIDE [Concomitant]
  7. VENTOLIN HFA [Concomitant]
  8. TORSEMIDE [Concomitant]
  9. COUMADIN [Concomitant]

REACTIONS (8)
  - Hypersensitivity [None]
  - Chronic obstructive pulmonary disease [None]
  - Diaphragmatic disorder [None]
  - Muscle spasms [None]
  - Lung disorder [None]
  - Chest pain [None]
  - Tremor [None]
  - Muscle rigidity [None]
